FAERS Safety Report 15173573 (Version 2)
Quarter: 2018Q3

REPORT INFORMATION
  Report Type: Spontaneous
  Country: US (occurrence: US)
  Receive Date: 20180720
  Receipt Date: 20180802
  Transmission Date: 20181010
  Serious: No
  Sender: FDA-Public Use
  Company Number: US-GILEAD-2018-0351075

PATIENT
  Age: 29 Year
  Sex: Male

DRUGS (2)
  1. INH?B6 CORBIERE [Concomitant]
     Indication: LATENT TUBERCULOSIS
  2. GENVOYA [Suspect]
     Active Substance: COBICISTAT\ELVITEGRAVIR\EMTRICITABINE\TENOFOVIR ALAFENAMIDE FUMARATE
     Indication: HIV INFECTION
     Dosage: UNK
     Route: 065
     Dates: start: 201804

REACTIONS (1)
  - Gout [Not Recovered/Not Resolved]
